FAERS Safety Report 16717246 (Version 1)
Quarter: 2019Q3

REPORT INFORMATION
  Report Type: Spontaneous
  Country: US (occurrence: US)
  Receive Date: 20190819
  Receipt Date: 20190819
  Transmission Date: 20191005
  Serious: No
  Sender: FDA-Public Use
  Company Number: US-JNJFOC-20190811391

PATIENT
  Sex: Male
  Weight: 133.93 kg

DRUGS (1)
  1. INVEGA TRINZA [Suspect]
     Active Substance: PALIPERIDONE PALMITATE
     Indication: BIPOLAR DISORDER
     Route: 030
     Dates: start: 2017, end: 201904

REACTIONS (5)
  - Product use in unapproved indication [Unknown]
  - Extraocular muscle disorder [Recovering/Resolving]
  - Dyskinesia [Not Recovered/Not Resolved]
  - Off label use [Unknown]
  - Facial spasm [Recovering/Resolving]

NARRATIVE: CASE EVENT DATE: 2017
